FAERS Safety Report 12707055 (Version 1)
Quarter: 2016Q3

REPORT INFORMATION
  Report Type: Spontaneous
  Country: CN (occurrence: CN)
  Receive Date: 20160901
  Receipt Date: 20160901
  Transmission Date: 20161109
  Serious: Yes (Death, Other)
  Sender: FDA-Public Use
  Company Number: PHHY2016CN118332

PATIENT
  Age: 57 Year
  Sex: Male

DRUGS (1)
  1. IMATINIB [Suspect]
     Active Substance: IMATINIB
     Indication: GASTROINTESTINAL STROMAL TUMOUR
     Route: 065

REACTIONS (7)
  - Retroperitoneal cancer [Unknown]
  - Infection [Fatal]
  - Gastrointestinal stromal tumour [Unknown]
  - Malignant neoplasm progression [Unknown]
  - Multiple organ dysfunction syndrome [Fatal]
  - Histology abnormal [Unknown]
  - Neoplasm recurrence [Unknown]
